FAERS Safety Report 5576545-8 (Version None)
Quarter: 2007Q4

REPORT INFORMATION
  Report Type: 
  Country: None (occurrence: None)
  Receive Date: 20071228
  Receipt Date: 20071218
  Transmission Date: 20080405
  Serious: Yes (Hospitalization)
  Sender: FDA-Public Use
  Company Number: B0501051A

PATIENT
  Age: 52 Year
  Sex: Male

DRUGS (4)
  1. AUGMENTIN '125' [Suspect]
     Indication: DIVERTICULITIS
     Dosage: 1G THREE TIMES PER DAY
     Route: 048
     Dates: start: 20071029, end: 20071105
  2. SECTRAL [Concomitant]
     Route: 065
  3. LASILIX [Concomitant]
     Route: 065
  4. DIFFU K [Concomitant]
     Route: 065

REACTIONS (2)
  - COLITIS ISCHAEMIC [None]
  - KLEBSIELLA INFECTION [None]
